FAERS Safety Report 12018005 (Version 1)
Quarter: 2016Q1

REPORT INFORMATION
  Report Type: Report from Study
  Country: US (occurrence: US)
  Receive Date: 20160205
  Receipt Date: 20160205
  Transmission Date: 20160526
  Serious: No
  Sender: FDA-Public Use
  Company Number: US-ABBVIE-15K-163-1456008-00

PATIENT
  Age: 55 Year
  Sex: Male

DRUGS (3)
  1. HUMIRA [Suspect]
     Active Substance: ADALIMUMAB
     Route: 065
     Dates: start: 20150831, end: 20150831
  2. HUMIRA [Suspect]
     Active Substance: ADALIMUMAB
     Route: 065
     Dates: start: 20150914
  3. HUMIRA [Suspect]
     Active Substance: ADALIMUMAB
     Indication: PSORIASIS
     Route: 065
     Dates: start: 20150824, end: 20150824

REACTIONS (7)
  - Respiratory tract congestion [Unknown]
  - Headache [Unknown]
  - Inappropriate schedule of drug administration [Unknown]
  - Headache [Recovered/Resolved]
  - Injection site pain [Recovered/Resolved]
  - Respiratory tract congestion [Recovering/Resolving]
  - Nasopharyngitis [Recovering/Resolving]

NARRATIVE: CASE EVENT DATE: 2015
